FAERS Safety Report 9066754 (Version 1)
Quarter: 2013Q1

REPORT INFORMATION
  Report Type: Spontaneous
  Country: US (occurrence: US)
  Receive Date: 20130214
  Receipt Date: 20130214
  Transmission Date: 20140127
  Serious: Yes (Hospitalization)
  Sender: FDA-Public Use
  Company Number: US-GLAXOSMITHKLINE-A1011256A

PATIENT
  Age: 63 Year
  Sex: Female

DRUGS (11)
  1. ADVAIR [Suspect]
     Indication: CHRONIC OBSTRUCTIVE PULMONARY DISEASE
     Dosage: 1PUFF TWICE PER DAY
     Route: 055
     Dates: start: 200802, end: 201211
  2. ADVAIR [Suspect]
     Indication: CHRONIC OBSTRUCTIVE PULMONARY DISEASE
     Route: 055
     Dates: start: 201211
  3. COMBIVENT [Concomitant]
  4. PREDNISONE [Concomitant]
  5. AMILORIDE [Concomitant]
  6. LANTUS [Concomitant]
  7. VITAMIN D [Concomitant]
  8. CALCIUM [Concomitant]
  9. VIREAD [Concomitant]
  10. GABAPENTIN [Concomitant]
  11. ALPRAZOLAM [Concomitant]

REACTIONS (2)
  - Tachypnoea [Recovered/Resolved]
  - Dyspnoea [Recovered/Resolved]
